FAERS Safety Report 11094384 (Version 1)
Quarter: 2015Q2

REPORT INFORMATION
  Report Type: Spontaneous
  Country: US (occurrence: US)
  Receive Date: 20150506
  Receipt Date: 20150506
  Transmission Date: 20150821
  Serious: No
  Sender: FDA-Public Use
  Company Number: US-GLAXOSMITHKLINE-US2015056308

PATIENT
  Sex: Male

DRUGS (5)
  1. BREO ELLIPTA [Suspect]
     Active Substance: FLUTICASONE FUROATE\VILANTEROL TRIFENATATE
     Indication: ASTHMA
  2. ATENOLOL. [Concomitant]
     Active Substance: ATENOLOL
  3. ROPINIROLE. [Concomitant]
     Active Substance: ROPINIROLE
  4. SYNTHROID [Concomitant]
     Active Substance: LEVOTHYROXINE SODIUM
  5. BREO ELLIPTA [Suspect]
     Active Substance: FLUTICASONE FUROATE\VILANTEROL TRIFENATATE
     Indication: BRONCHOSPASM
     Dosage: 1 PUFF(S), QD
     Route: 055
     Dates: start: 20150319

REACTIONS (2)
  - Blood pressure diastolic decreased [Unknown]
  - Blood pressure systolic increased [Unknown]
